FAERS Safety Report 20380929 (Version 1)
Quarter: 2022Q1

REPORT INFORMATION
  Report Type: Spontaneous
  Country: NL (occurrence: NL)
  Receive Date: 20220127
  Receipt Date: 20220127
  Transmission Date: 20220423
  Serious: Yes (Hospitalization)
  Sender: FDA-Public Use
  Company Number: NL-ROCHE-2997406

PATIENT
  Age: 75 Year
  Sex: Male

DRUGS (4)
  1. BEVACIZUMAB [Suspect]
     Active Substance: BEVACIZUMAB
     Indication: Lung neoplasm malignant
     Dosage: LAST CYCLE DOSE 18/NOV/2021CUMULATIVE DOSE 9840 MG NUMBER OF CYCLE 8
     Route: 042
     Dates: start: 20210520
  2. ATEZOLIZUMAB [Suspect]
     Active Substance: ATEZOLIZUMAB
     Indication: Lung neoplasm malignant
     Dosage: NUMBER OF CYCLE 7CUMULATIVE DOSE 8400 MG
     Route: 041
     Dates: start: 20210520
  3. PACLITAXEL [Suspect]
     Active Substance: PACLITAXEL
     Indication: Lung neoplasm malignant
     Dosage: LAST DOSE ON 26/AUG/2021NUMBER OF CYCLE 4 CUMULATIVE DOSE OF 1320.6 MG
     Route: 042
     Dates: start: 20210520
  4. CARBOPLATIN [Suspect]
     Active Substance: CARBOPLATIN
     Indication: Lung neoplasm malignant
     Dosage: LAST DOSE ON 26/AUG/2021NUMBER OF CYCLE 4 CUMULATIVE DOSE OF 2252.8 MG
     Route: 042
     Dates: start: 20210520

REACTIONS (2)
  - Coronary artery disease [Recovered/Resolved with Sequelae]
  - Hydronephrosis [Not Recovered/Not Resolved]

NARRATIVE: CASE EVENT DATE: 20211214
